FAERS Safety Report 9479594 (Version 2)
Quarter: 2013Q4

REPORT INFORMATION
  Report Type: Report from Study
  Country: BR (occurrence: BR)
  Receive Date: 20130827
  Receipt Date: 20131129
  Transmission Date: 20140711
  Serious: No
  Sender: FDA-Public Use
  Company Number: PHHY2013BR091827

PATIENT
  Age: 84 Year
  Sex: Female
  Weight: 70 kg

DRUGS (6)
  1. ACLASTA [Suspect]
     Indication: OSTEOPOROSIS
     Dosage: 5 MG, ANNUALY
     Route: 042
  2. SIMVASTATIN [Suspect]
     Dosage: 1 DF, DAILY
     Route: 048
     Dates: end: 201305
  3. CALDE [Concomitant]
     Indication: BONE DISORDER
     Dosage: 1 DF, QD
     Route: 048
  4. MICARDIS [Concomitant]
     Indication: CARDIAC DISORDER
     Dosage: 1 DF, QD
     Route: 048
     Dates: start: 2012
  5. SOMALGIN [Concomitant]
     Indication: BLOOD DISORDER
     Dosage: 1 DF, QD
     Dates: start: 2012
  6. VALDOXAN [Concomitant]
     Indication: DEPRESSION
     Dosage: 1 DF, QD
     Route: 048
     Dates: start: 2012

REACTIONS (5)
  - Low density lipoprotein increased [Not Recovered/Not Resolved]
  - Weight decreased [Not Recovered/Not Resolved]
  - Nervousness [Unknown]
  - Decreased appetite [Not Recovered/Not Resolved]
  - Malaise [Unknown]
